FAERS Safety Report 4757402-3 (Version None)
Quarter: 2005Q3

REPORT INFORMATION
  Report Type: 
  Country: None (occurrence: None)
  Receive Date: 20050831
  Receipt Date: 20050822
  Transmission Date: 20060218
  Serious: Yes (Other)
  Sender: FDA-Public Use
  Company Number: PR-GLAXOSMITHKLINE-A0571410A

PATIENT
  Age: 52 Year
  Sex: Male
  Weight: 90.9 kg

DRUGS (4)
  1. ECOTRIN MAXIMUM STRENGTH TABLETS [Suspect]
     Indication: PROPHYLAXIS
     Route: 048
     Dates: start: 20040101
  2. ECOTRIN REGULAR STRENGTH TABLETS [Suspect]
     Indication: PROPHYLAXIS
     Route: 048
     Dates: start: 20050601
  3. MICRONASE [Concomitant]
     Dosage: 5MG FOUR TIMES PER DAY
     Route: 048
  4. INSULIN [Concomitant]
     Route: 058

REACTIONS (3)
  - BLOOD URINE PRESENT [None]
  - COAGULOPATHY [None]
  - POST PROCEDURAL HAEMORRHAGE [None]
